FAERS Safety Report 8153012-9 (Version None)
Quarter: 2012Q1

REPORT INFORMATION
  Report Type: 
  Country: None (occurrence: None)
  Receive Date: 20120215
  Receipt Date: 20120130
  Transmission Date: 20120608
  Serious: No
  Sender: FDA-Public Use
  Company Number: OPER20120052

PATIENT
  Age: 56 Year
  Sex: Male
  Weight: 88.4514 kg

DRUGS (1)
  1. OPANA ER [Suspect]
     Indication: BACK PAIN
     Dosage: 40 MG, 2 IN 1 D, ORAL
     Route: 048
     Dates: start: 20110126

REACTIONS (2)
  - THYROID NEOPLASM [None]
  - MEMORY IMPAIRMENT [None]
